FAERS Safety Report 23145522 (Version 2)
Quarter: 2023Q4

REPORT INFORMATION
  Report Type: Report from Study
  Country: CN (occurrence: CN)
  Receive Date: 20231103
  Receipt Date: 20231109
  Transmission Date: 20240110
  Serious: Yes (Hospitalization)
  Sender: FDA-Public Use
  Company Number: CN-SEATTLE GENETICS-2023SGN11659

PATIENT
  Age: 55 Year
  Sex: Male
  Weight: 57.5 kg

DRUGS (8)
  1. TUCATINIB [Suspect]
     Active Substance: TUCATINIB
     Indication: Colon cancer
     Dosage: 300 MG, BID
     Route: 048
     Dates: start: 20231013
  2. TRASTUZUMAB [Suspect]
     Active Substance: TRASTUZUMAB
     Indication: Colon cancer
     Dosage: 8 MG/KG, SINGLE LOADING DOSE ON C1D1
     Route: 042
     Dates: start: 20231013
  3. OXALIPLATIN [Suspect]
     Active Substance: OXALIPLATIN
     Indication: Colon cancer
     Dosage: 85 MG/M2 IV EVERY 2 WEEKS ON DAYS 1,15 AND 29 OF EACH 6-WEEK (42-DAY) CYCLE
     Route: 042
     Dates: start: 20231013
  4. FLUOROURACIL [Suspect]
     Active Substance: FLUOROURACIL
     Indication: Colon cancer
     Dosage: 400 MG/M2 (BOLUS), THEN 2400 MG/M2 OVER 46-48 HOURS EVERY 2 WEEKS ON DAYS 1, 15 AND 29 OF EACH 6-WEE
     Route: 042
     Dates: start: 20231013
  5. LEUCOVORIN [Suspect]
     Active Substance: LEUCOVORIN\LEUCOVORIN CALCIUM
     Indication: Colon cancer
     Dosage: 400 MG/M2, ON DAYS 1, 15, 29 OF EACH 6-WEEK CYCLE
     Route: 042
     Dates: start: 20231013
  6. LOPERAMIDE [Suspect]
     Active Substance: LOPERAMIDE
     Indication: Prophylaxis against diarrhoea
     Dosage: 4 MG TID (DAYS 1 TO 14) FOLLOWED BY 4MG BID (DAY 15 THROUGH 42)
     Dates: start: 20231013
  7. NIFEDIPINE [Concomitant]
     Active Substance: NIFEDIPINE
     Indication: Hypertension
     Dosage: 20 MG
     Dates: start: 20230925
  8. GLYCYRRHIZIN [Concomitant]
     Active Substance: GLYCYRRHIZIN
     Indication: Liver disorder
     Dosage: 150 MG
     Dates: start: 20231018

REACTIONS (1)
  - Myelosuppression [Recovered/Resolved]

NARRATIVE: CASE EVENT DATE: 20231030
